FAERS Safety Report 8936969 (Version 1)
Quarter: 2012Q4

REPORT INFORMATION
  Report Type: Report from Study
  Country: US (occurrence: US)
  Receive Date: 20121130
  Receipt Date: 20121130
  Transmission Date: 20130627
  Serious: Yes (Hospitalization, Other)
  Sender: FDA-Public Use
  Company Number: US-BRISTOL-MYERS SQUIBB COMPANY-16431389

PATIENT
  Age: 38 Year
  Sex: Male
  Weight: 70.9 kg

DRUGS (2)
  1. IPILIMUMAB [Suspect]
     Indication: MALIGNANT MELANOMA
     Dosage: last:14Feb12. Ind + maint: 10mg/kg over 90mins q3 wks 4 doses, q12 wks on wks 24 36 48 60 3 doses
     Route: 042
     Dates: start: 20120103
  2. PREDNISONE [Suspect]

REACTIONS (4)
  - Gastritis [Recovering/Resolving]
  - Duodenitis [Recovering/Resolving]
  - Lipase increased [Recovering/Resolving]
  - Amylase increased [Recovering/Resolving]
